FAERS Safety Report 6621598-9 (Version None)
Quarter: 2010Q1

REPORT INFORMATION
  Report Type: 
  Country: None (occurrence: None)
  Receive Date: 20100223
  Receipt Date: 20100114
  Transmission Date: 20100710
  Serious: Yes (Other)
  Sender: FDA-Public Use
  Company Number: 004525

PATIENT
  Sex: Female
  Weight: 120.6 kg

DRUGS (10)
  1. CIMZIA [Suspect]
     Indication: CROHN'S DISEASE
     Dosage: (400 MG SUBCUTANEOUS)
     Route: 058
     Dates: start: 20090901
  2. ALLOPURINOL [Concomitant]
  3. EFFEXOR [Concomitant]
  4. GLUCOPHAGE [Concomitant]
  5. HYDROCHLOROTHIAZIDE [Concomitant]
  6. LYRICA [Concomitant]
  7. MIRAPEX [Concomitant]
  8. NAPROXEN [Concomitant]
  9. PROTONIX [Concomitant]
  10. TOPROL-XL [Concomitant]

REACTIONS (1)
  - DIZZINESS [None]
